FAERS Safety Report 6694257-4 (Version None)
Quarter: 2010Q2

REPORT INFORMATION
  Report Type: 
  Country: None (occurrence: None)
  Receive Date: 20100421
  Receipt Date: 20100409
  Transmission Date: 20101027
  Serious: Yes (Hospitalization, Other)
  Sender: FDA-Public Use
  Company Number: 2009-198049-NL

PATIENT
  Age: 29 Year
  Sex: Female
  Weight: 74.8435 kg

DRUGS (8)
  1. NUVARING [Suspect]
     Indication: CONTRACEPTION
     Dates: start: 20070228, end: 20070701
  2. TYLENOL-500 [Concomitant]
  3. IMITREX [Concomitant]
  4. ROBITUSSIN [Concomitant]
  5. SUDAFED 12 HOUR [Concomitant]
  6. ALBUTEROL [Concomitant]
  7. PULMICORT [Concomitant]
  8. ADVAIR DISKUS 100/50 [Concomitant]

REACTIONS (33)
  - AMNESIA [None]
  - ANAEMIA [None]
  - ASTHENIA [None]
  - BALANCE DISORDER [None]
  - CEREBROVASCULAR ACCIDENT [None]
  - CHOLECYSTITIS [None]
  - COGNITIVE DISORDER [None]
  - CONSTIPATION [None]
  - CONTUSION [None]
  - DEPRESSION [None]
  - DIARRHOEA [None]
  - DIPLOPIA [None]
  - DIZZINESS [None]
  - DIZZINESS POSTURAL [None]
  - EAR PAIN [None]
  - FALL [None]
  - HEAD INJURY [None]
  - HEADACHE [None]
  - HYPERCOAGULATION [None]
  - HYPOKALAEMIA [None]
  - HYPOTHYROIDISM [None]
  - INTRACRANIAL PRESSURE INCREASED [None]
  - INTRACRANIAL VENOUS SINUS THROMBOSIS [None]
  - IRRITABLE BOWEL SYNDROME [None]
  - MIGRAINE [None]
  - MIXED HYPERLIPIDAEMIA [None]
  - NAUSEA [None]
  - PAPILLOEDEMA [None]
  - SINUSITIS [None]
  - THROMBOSIS [None]
  - THYROID DISORDER [None]
  - TINNITUS [None]
  - VERTIGO POSITIONAL [None]
